FAERS Safety Report 19352752 (Version 4)
Quarter: 2024Q3

REPORT INFORMATION
  Report Type: Spontaneous
  Country: FR (occurrence: FR)
  Receive Date: 20210601
  Receipt Date: 20240918
  Transmission Date: 20241017
  Serious: Yes (Life-Threatening)
  Sender: BAUSCH AND LOMB
  Company Number: None

PATIENT
  Age: 21 Year
  Sex: Female
  Weight: 70 kg

DRUGS (6)
  1. DEXAMETHASONE [Suspect]
     Active Substance: DEXAMETHASONE
     Indication: Product used for unknown indication
     Route: 042
     Dates: start: 20210429, end: 20210429
  2. PROPOFOL LIPURO [Suspect]
     Active Substance: PROPOFOL
     Indication: Induction of anaesthesia
     Route: 042
     Dates: start: 20210429, end: 20210429
  3. SUFENTANIL [Suspect]
     Active Substance: SUFENTANIL
     Indication: Induction of anaesthesia
     Route: 042
     Dates: start: 20210429, end: 20210429
  4. SUCCINYLCHOLINE CHLORIDE [Suspect]
     Active Substance: SUCCINYLCHOLINE CHLORIDE
     Indication: Induction of anaesthesia
     Route: 042
     Dates: start: 20210429, end: 20210429
  5. PERFALGAN [Concomitant]
     Active Substance: ACETAMINOPHEN
     Indication: Product used for unknown indication
  6. SPASFON [Concomitant]
     Indication: Product used for unknown indication

REACTIONS (1)
  - Anaphylactic shock [Recovered/Resolved]

NARRATIVE: CASE EVENT DATE: 20210429
